FAERS Safety Report 8588209-7 (Version None)
Quarter: 2012Q3

REPORT INFORMATION
  Report Type: 
  Country: None (occurrence: None)
  Receive Date: 20120803
  Receipt Date: 20120803
  Transmission Date: 20120928
  Serious: Yes (Life-Threatening)
  Sender: FDA-Public Use
  Company Number: None

PATIENT
  Age: 30 Year
  Sex: Female
  Weight: 68.4932 kg

DRUGS (1)
  1. MAKENA [Suspect]
     Indication: PREGNANCY

REACTIONS (8)
  - MATERNAL EXPOSURE DURING DELIVERY [None]
  - PANIC ATTACK [None]
  - DEPRESSION [None]
  - FLATULENCE [None]
  - TREMOR [None]
  - ECONOMIC PROBLEM [None]
  - INJECTION SITE PAIN [None]
  - CONSTIPATION [None]
